FAERS Safety Report 26125090 (Version 1)
Quarter: 2025Q4

REPORT INFORMATION
  Report Type: Spontaneous
  Country: EU (occurrence: EU)
  Receive Date: 20251205
  Receipt Date: 20251205
  Transmission Date: 20260118
  Serious: Yes (Hospitalization, Other)
  Sender: RANBAXY
  Company Number: EU-SUN PHARMACEUTICAL INDUSTRIES LTD-2025R1-535640

PATIENT
  Age: 73 Year
  Sex: Female

DRUGS (2)
  1. DAPSONE [Suspect]
     Active Substance: DAPSONE
     Indication: Neutrophilic dermatosis
     Dosage: 100 MILLIGRAM, QD
     Route: 065
  2. PREDNISOLONE [Suspect]
     Active Substance: PREDNISOLONE
     Indication: Neutrophilic dermatosis
     Dosage: 30 MILLIGRAM 1 WEEK
     Route: 065

REACTIONS (2)
  - Anaemia [Unknown]
  - Respiratory failure [Unknown]
